FAERS Safety Report 19410003 (Version 2)
Quarter: 2021Q3

REPORT INFORMATION
  Report Type: Report from Study
  Country: SZ (occurrence: CH)
  Receive Date: 20210614
  Receipt Date: 20210713
  Transmission Date: 20211014
  Serious: Yes (Other)
  Sender: FDA-Public Use
  Company Number: CH-BEH-2021132785

PATIENT
  Age: 69 Year
  Sex: Female
  Weight: 68 kg

DRUGS (2)
  1. PRIVIGEN [Suspect]
     Active Substance: HUMAN IMMUNOGLOBULIN G
     Dosage: 20 GRAM
     Route: 042
     Dates: start: 20210604
  2. PRIVIGEN [Suspect]
     Active Substance: HUMAN IMMUNOGLOBULIN G
     Indication: IMMUNODEFICIENCY
     Dosage: 5 GRAM
     Route: 042
     Dates: start: 20210604

REACTIONS (5)
  - Blood iron decreased [Not Recovered/Not Resolved]
  - Hypotension [Not Recovered/Not Resolved]
  - Osteoarthritis [Not Recovered/Not Resolved]
  - Thrombocytopenia [Recovered/Resolved]
  - Gastric polypectomy [Recovered/Resolved]

NARRATIVE: CASE EVENT DATE: 202106
